FAERS Safety Report 10228435 (Version 1)
Quarter: 2014Q2

REPORT INFORMATION
  Report Type: Spontaneous
  Country: US (occurrence: None)
  Receive Date: 20140502
  Receipt Date: 20140502
  Transmission Date: 20141212
  Serious: No
  Sender: FDA-Public Use
  Company Number: 2013-US-005191

PATIENT
  Sex: Female

DRUGS (1)
  1. ERWINAZE [Suspect]
     Dosage: UNKNOWN

REACTIONS (1)
  - Injection site pain [None]
